FAERS Safety Report 9036487 (Version 1)
Quarter: 2013Q1

REPORT INFORMATION
  Report Type: Spontaneous
  Country: US (occurrence: None)
  Receive Date: 20130122
  Receipt Date: 20130122
  Transmission Date: 20140127
  Serious: Yes (Other)
  Sender: FDA-Public Use
  Company Number: None

PATIENT
  Age: 57 Year
  Sex: Female
  Weight: 57.15 kg

DRUGS (1)
  1. COMBIPATCH [Suspect]
     Indication: MENOPAUSAL SYMPTOMS
     Dosage: .05/.14 PER DAY, TRANSDERMAL
     Route: 062
     Dates: start: 20121216, end: 20130117

REACTIONS (8)
  - Drug ineffective [None]
  - Product quality issue [None]
  - Sleep disorder [None]
  - Hot flush [None]
  - Decreased appetite [None]
  - Migraine [None]
  - Malaise [None]
  - Fatigue [None]
